FAERS Safety Report 4885453-7 (Version None)
Quarter: 2005Q4

REPORT INFORMATION
  Report Type: 
  Country: None (occurrence: None)
  Receive Date: 20051220
  Receipt Date: 20051018
  Transmission Date: 20060501
  Serious: Yes (Other)
  Sender: FDA-Public Use
  Company Number: HQWYE119120OCT05

PATIENT
  Age: 31 Year
  Sex: Female
  Weight: 55.84 kg

DRUGS (4)
  1. EFFEXOR XR [Suspect]
     Indication: ARTHRALGIA
     Dosage: 75 MG 1X PER 1 DAY, ORAL; 300 MG 1X PER 1 DAY, ORAL; ^WEANING^, ORAL
     Route: 048
     Dates: start: 20041213, end: 20041219
  2. EFFEXOR XR [Suspect]
     Indication: ARTHRALGIA
     Dosage: 75 MG 1X PER 1 DAY, ORAL; 300 MG 1X PER 1 DAY, ORAL; ^WEANING^, ORAL
     Route: 048
     Dates: start: 20041220, end: 20050301
  3. EFFEXOR XR [Suspect]
     Indication: ARTHRALGIA
     Dosage: 75 MG 1X PER 1 DAY, ORAL; 300 MG 1X PER 1 DAY, ORAL; ^WEANING^, ORAL
     Route: 048
     Dates: start: 20050301, end: 20050301
  4. UNSPECIFIED PAIN MEDICATION (UNSPECIFIED PAIN MEDICATION) [Concomitant]

REACTIONS (7)
  - BACK PAIN [None]
  - CONSTIPATION [None]
  - EPISTAXIS [None]
  - HEADACHE [None]
  - INSOMNIA [None]
  - SEROTONIN SYNDROME [None]
  - WEIGHT DECREASED [None]
